FAERS Safety Report 6085796-8 (Version None)
Quarter: 2009Q1

REPORT INFORMATION
  Report Type: 
  Country: None (occurrence: None)
  Receive Date: 20090217
  Receipt Date: 20080123
  Transmission Date: 20090719
  Serious: Yes (Other)
  Sender: FDA-Public Use
  Company Number: MC200800053

PATIENT
  Age: 63 Year
  Sex: Male
  Weight: 90.7 kg

DRUGS (2)
  1. ANGIOMAX [Suspect]
     Indication: PERCUTANEOUS CORONARY INTERVENTION
     Dosage: 13.5 ML (5MG/ML),BOLUS, IV BOLUS; 31.5 ML (5MG/ML), HR, INTRAVENOUS
     Route: 040
     Dates: start: 20080109, end: 20080109
  2. ANGIOMAX [Suspect]
     Indication: PERCUTANEOUS CORONARY INTERVENTION
     Dosage: 13.5 ML (5MG/ML),BOLUS, IV BOLUS; 31.5 ML (5MG/ML), HR, INTRAVENOUS
     Route: 040
     Dates: start: 20080109, end: 20080109

REACTIONS (2)
  - CHEST PAIN [None]
  - CORONARY ARTERY THROMBOSIS [None]
